FAERS Safety Report 15690868 (Version 1)
Quarter: 2018Q4

REPORT INFORMATION
  Report Type: Spontaneous
  Country: CA (occurrence: CA)
  Receive Date: 20181205
  Receipt Date: 20181205
  Transmission Date: 20190205
  Serious: Yes (Other)
  Sender: FDA-Public Use
  Company Number: CA-SHIRE-CA201845931

PATIENT

DRUGS (1)
  1. GAMMAGARD LIQUID [Suspect]
     Active Substance: HUMAN IMMUNOGLOBULIN G
     Indication: FOETAL EXPOSURE TIMING UNSPECIFIED
     Dosage: 1G/KG
     Route: 064

REACTIONS (4)
  - Hydrops foetalis [Unknown]
  - False negative investigation result [Unknown]
  - Foetal exposure during pregnancy [Unknown]
  - Premature baby [Unknown]
